FAERS Safety Report 7850799-7 (Version None)
Quarter: 2011Q4

REPORT INFORMATION
  Report Type: 
  Country: None (occurrence: None)
  Receive Date: 20111026
  Receipt Date: 20111017
  Transmission Date: 20120403
  Serious: Yes (Other)
  Sender: FDA-Public Use
  Company Number: US-BAYER-2011-100405

PATIENT
  Age: 63 Year
  Sex: Female

DRUGS (1)
  1. MIRENA [Suspect]
     Indication: HORMONE REPLACEMENT THERAPY
     Dosage: 20 MCG/24HR, CONT
     Dates: start: 20110930

REACTIONS (3)
  - HEART RATE DECREASED [None]
  - POST PROCEDURAL HAEMORRHAGE [None]
  - BLOOD PRESSURE SYSTOLIC INCREASED [None]
